FAERS Safety Report 7920597-4 (Version None)
Quarter: 2011Q4

REPORT INFORMATION
  Report Type: 
  Country: None (occurrence: None)
  Receive Date: 20111117
  Receipt Date: 20111115
  Transmission Date: 20120403
  Serious: Yes (Death, Other)
  Sender: FDA-Public Use
  Company Number: PHHY2011DE100476

PATIENT
  Age: 81 Year
  Sex: Male

DRUGS (3)
  1. AFINITOR [Suspect]
     Indication: RENAL CELL CARCINOMA
     Dosage: 10 MG, DAILY
     Route: 048
     Dates: start: 20110510, end: 20110101
  2. STEROIDS NOS [Concomitant]
     Route: 048
  3. ACETYLSALICYLIC ACID SRT [Concomitant]

REACTIONS (4)
  - CEREBROVASCULAR ACCIDENT [None]
  - KARNOFSKY SCALE WORSENED [None]
  - GLOSSITIS [None]
  - STOMATITIS [None]
